FAERS Safety Report 20846172 (Version 2)
Quarter: 2022Q2

REPORT INFORMATION
  Report Type: Report from Study
  Country: US (occurrence: US)
  Receive Date: 20220518
  Receipt Date: 20220629
  Transmission Date: 20220720
  Serious: Yes (Hospitalization)
  Sender: FDA-Public Use
  Company Number: US-GILEAD-2022-0581579

PATIENT
  Sex: Female
  Weight: 45.4 kg

DRUGS (2)
  1. SACITUZUMAB GOVITECAN [Suspect]
     Active Substance: SACITUZUMAB GOVITECAN
     Indication: Squamous cell carcinoma of pharynx
     Dosage: 10 MG/KG
     Route: 042
     Dates: start: 20220209
  2. SACITUZUMAB GOVITECAN [Suspect]
     Active Substance: SACITUZUMAB GOVITECAN
     Dosage: 7.5 MG/KG (LAST DOSE PRIOR TO EVENT)
     Route: 042
     Dates: start: 20220330

REACTIONS (3)
  - Dysphagia [Recovered/Resolved]
  - Oral pain [Recovered/Resolved]
  - Skin infection [Recovered/Resolved]

NARRATIVE: CASE EVENT DATE: 20220330
